FAERS Safety Report 6874761-6 (Version None)
Quarter: 2010Q3

REPORT INFORMATION
  Report Type: 
  Country: None (occurrence: None)
  Receive Date: 20100723
  Receipt Date: 20100716
  Transmission Date: 20110219
  Serious: Yes (Hospitalization, Other)
  Sender: FDA-Public Use
  Company Number: 2010SP039688

PATIENT
  Age: 45 Year
  Sex: Female

DRUGS (2)
  1. RIBAVIRIN [Suspect]
     Indication: HEPATITIS C
     Dosage: PO
     Route: 048
     Dates: start: 20080101
  2. PEGASYS [Suspect]
     Indication: HEPATITIS C
     Dates: start: 20080101

REACTIONS (2)
  - DEVICE RELATED SEPSIS [None]
  - LOSS OF CONSCIOUSNESS [None]
